FAERS Safety Report 12997882 (Version 1)
Quarter: 2016Q4

REPORT INFORMATION
  Report Type: Report from Study
  Country: US (occurrence: US)
  Receive Date: 20161205
  Receipt Date: 20161205
  Transmission Date: 20170207
  Serious: Yes (Hospitalization)
  Sender: FDA-Public Use
  Company Number: US-ROCHE-1858397

PATIENT
  Age: 66 Year
  Sex: Female
  Weight: 54.8 kg

DRUGS (6)
  1. PRILOSEC [Concomitant]
     Active Substance: OMEPRAZOLE MAGNESIUM
     Indication: GASTROOESOPHAGEAL REFLUX DISEASE
     Route: 048
  2. BEVACIZUMAB [Suspect]
     Active Substance: BEVACIZUMAB
     Indication: NEOPLASM
     Dosage: MOST RECENT DOSE OF 841.5 MG WAS ADMINISTERED ON 07/NOV/2016.
     Route: 042
     Dates: start: 20160926
  3. BIOSOL (AMINO ACIDS) [Concomitant]
     Route: 048
  4. LIPITOR [Concomitant]
     Active Substance: ATORVASTATIN CALCIUM
     Indication: HYPERLIPIDAEMIA
     Route: 048
  5. BIOTIN [Concomitant]
     Active Substance: BIOTIN
     Route: 048
  6. ATEZOLIZUMAB [Suspect]
     Active Substance: ATEZOLIZUMAB
     Indication: NEOPLASM
     Dosage: FIXED DOSE PER PROTOCOL. MOST RECENT DOSE ADMINISTERED ON 07/NOV/2016.
     Route: 042
     Dates: start: 20160926

REACTIONS (1)
  - Small intestinal obstruction [Not Recovered/Not Resolved]

NARRATIVE: CASE EVENT DATE: 20161118
